FAERS Safety Report 18936839 (Version 1)
Quarter: 2021Q1

REPORT INFORMATION
  Report Type: Spontaneous
  Country: CA (occurrence: CA)
  Receive Date: 20210225
  Receipt Date: 20210225
  Transmission Date: 20210420
  Serious: Yes (Other)
  Sender: FDA-Public Use
  Company Number: CA-JNJFOC-20210240518

PATIENT
  Age: 29 Year
  Sex: Female
  Weight: 29 kg

DRUGS (3)
  1. REMICADE [Suspect]
     Active Substance: INFLIXIMAB
     Indication: CROHN^S DISEASE
     Route: 042
  2. HYDROCORTISONE. [Concomitant]
     Active Substance: HYDROCORTISONE
     Indication: PREMEDICATION
     Route: 065
  3. ENTOCORT [Concomitant]
     Active Substance: BUDESONIDE
     Dosage: CAPSULE, SUSTAINEDRELEASE

REACTIONS (2)
  - Weight increased [Unknown]
  - Off label use [Unknown]
